FAERS Safety Report 9795483 (Version 1)
Quarter: 2014Q1

REPORT INFORMATION
  Report Type: Spontaneous
  Country: IT (occurrence: IT)
  Receive Date: 20140103
  Receipt Date: 20140103
  Transmission Date: 20141002
  Serious: Yes (Other)
  Sender: FDA-Public Use
  Company Number: IT-MYLANLABS-2013S1028844

PATIENT
  Age: 11 Year
  Sex: Male

DRUGS (1)
  1. ANASTROZOLE [Suspect]
     Indication: GYNAECOMASTIA
     Route: 065

REACTIONS (1)
  - Growth retardation [Unknown]
